FAERS Safety Report 4309408-6 (Version None)
Quarter: 2004Q1

REPORT INFORMATION
  Report Type: 
  Country: None (occurrence: None)
  Receive Date: 20040301
  Receipt Date: 20040216
  Transmission Date: 20041129
  Serious: Yes (Hospitalization)
  Sender: FDA-Public Use
  Company Number: JP-JNJFOC-20030805294

PATIENT
  Age: 55 Year
  Sex: Male
  Weight: 78.3 kg

DRUGS (14)
  1. REMICADE [Suspect]
     Indication: RHEUMATOID ARTHRITIS
     Dosage: 3 MG/KG, 1 IN 1 AS NECESSARY, INTRAVENOUS DRIP; SEE IMAGE
     Route: 041
     Dates: start: 20010129, end: 20010129
  2. REMICADE [Suspect]
     Indication: RHEUMATOID ARTHRITIS
     Dosage: 3 MG/KG, 1 IN 1 AS NECESSARY, INTRAVENOUS DRIP; SEE IMAGE
     Route: 041
     Dates: start: 20010402, end: 20010402
  3. REMICADE [Suspect]
     Indication: RHEUMATOID ARTHRITIS
     Dosage: 3 MG/KG, 1 IN 1 AS NECESSARY, INTRAVENOUS DRIP; SEE IMAGE
     Route: 041
     Dates: start: 20010521, end: 20010521
  4. REMICADE [Suspect]
     Indication: RHEUMATOID ARTHRITIS
     Dosage: 3 MG/KG, 1 IN 1 AS NECESSARY, INTRAVENOUS DRIP; SEE IMAGE
     Route: 041
     Dates: start: 20010716, end: 20010716
  5. BETAMETHASONE [Concomitant]
  6. PREDNISOLONE [Concomitant]
  7. LOXOPROFEN SODIUM (LOXOPROFEN SODIUM) [Concomitant]
  8. ROCALTROL [Concomitant]
  9. CYTOTEC [Concomitant]
  10. LIPITOR [Concomitant]
  11. URALYT (URALYT) [Concomitant]
  12. RHEUMATREX [Concomitant]
  13. NEORAL [Concomitant]
  14. CYCLOPHOSPHAMIDE [Concomitant]

REACTIONS (11)
  - ANAL FISTULA [None]
  - ARTERIAL THROMBOSIS LIMB [None]
  - ARTHROPATHY [None]
  - ATHEROSCLEROSIS OBLITERANS [None]
  - CYANOSIS [None]
  - DIVERTICULITIS [None]
  - ILEUS [None]
  - INTESTINAL OBSTRUCTION [None]
  - POST PROCEDURAL COMPLICATION [None]
  - PYREXIA [None]
  - VESICAL FISTULA [None]
